FAERS Safety Report 10680127 (Version 2)
Quarter: 2015Q1

REPORT INFORMATION
  Report Type: Spontaneous
  Country: US (occurrence: US)
  Receive Date: 20141229
  Receipt Date: 20150220
  Transmission Date: 20150720
  Serious: Yes (Hospitalization, Other)
  Sender: FDA-Public Use
  Company Number: US-PFIZER INC-2014355584

PATIENT
  Sex: Female

DRUGS (1)
  1. BOSULIF [Suspect]
     Active Substance: BOSUTINIB MONOHYDRATE
     Dosage: UNK

REACTIONS (5)
  - Head discomfort [Unknown]
  - Ear discomfort [Unknown]
  - Pharyngeal disorder [Unknown]
  - Respiratory syncytial virus infection [Unknown]
  - Pneumonia viral [Unknown]
